FAERS Safety Report 8928713 (Version 1)
Quarter: 2012Q4

REPORT INFORMATION
  Report Type: Spontaneous
  Country: US (occurrence: None)
  Receive Date: 20121120
  Receipt Date: 20121120
  Transmission Date: 20130627
  Serious: Yes (Other)
  Sender: FDA-Public Use
  Company Number: 201211000151

PATIENT
  Age: 44 Year
  Sex: Female

DRUGS (18)
  1. INOMAX [Suspect]
     Indication: VASODILATATION
     Dosage: 10 PPM, continuous
     Route: 055
     Dates: start: 20121103, end: 20121103
  2. INOMAX [Suspect]
     Indication: LUNG DISORDER
     Dosage: 10 PPM, continuous
     Route: 055
     Dates: start: 20121103, end: 20121103
  3. INOMAX [Suspect]
     Dosage: 10 PPM, continuous
     Route: 055
     Dates: start: 20121103, end: 20121103
  4. INOMAX [Suspect]
     Indication: VASODILATATION
     Dosage: 40 PPM, continuous
     Route: 055
     Dates: start: 20121103, end: 20121104
  5. INOMAX [Suspect]
     Indication: LUNG DISORDER
     Dosage: 40 PPM, continuous
     Route: 055
     Dates: start: 20121103, end: 20121104
  6. INOMAX [Suspect]
     Dosage: 40 PPM, continuous
     Route: 055
     Dates: start: 20121103, end: 20121104
  7. INOMAX [Suspect]
     Indication: VASODILATATION
     Dosage: 70 PPM, continuous
     Route: 055
     Dates: start: 20121104, end: 20121104
  8. INOMAX [Suspect]
     Indication: LUNG DISORDER
     Dosage: 70 PPM, continuous
     Route: 055
     Dates: start: 20121104, end: 20121104
  9. INOMAX [Suspect]
     Dosage: 70 PPM, continuous
     Route: 055
     Dates: start: 20121104, end: 20121104
  10. INOMAX [Suspect]
     Indication: VASODILATATION
     Dosage: 80 PPM, continuous, continuous
     Route: 055
     Dates: start: 20121104, end: 20121104
  11. INOMAX [Suspect]
     Indication: LUNG DISORDER
     Dosage: 80 PPM, continuous, continuous
     Route: 055
     Dates: start: 20121104, end: 20121104
  12. INOMAX [Suspect]
     Dosage: 80 PPM, continuous, continuous
     Route: 055
     Dates: start: 20121104, end: 20121104
  13. INOMAX [Suspect]
     Indication: VASODILATATION
     Dosage: 70 PPM, continuous
     Route: 055
     Dates: start: 20121104, end: 201211
  14. INOMAX [Suspect]
     Indication: LUNG DISORDER
     Dosage: 70 PPM, continuous
     Route: 055
     Dates: start: 20121104, end: 201211
  15. INOMAX [Suspect]
     Dosage: 70 PPM, continuous
     Route: 055
     Dates: start: 20121104, end: 201211
  16. INOMAX [Suspect]
     Indication: VASODILATATION
     Dosage: 20 PPM, continuous
     Route: 055
     Dates: start: 201211, end: 20121107
  17. INOMAX [Suspect]
     Indication: LUNG DISORDER
     Dosage: 20 PPM, continuous
     Route: 055
     Dates: start: 201211, end: 20121107
  18. INOMAX [Suspect]
     Dosage: 20 PPM, continuous
     Route: 055
     Dates: start: 201211, end: 20121107

REACTIONS (4)
  - Pneumothorax [None]
  - Heart rate decreased [None]
  - Blood pressure decreased [None]
  - Device issue [None]
